FAERS Safety Report 20706245 (Version 1)
Quarter: 2022Q2

REPORT INFORMATION
  Report Type: Spontaneous
  Country: US (occurrence: US)
  Receive Date: 20220413
  Receipt Date: 20220413
  Transmission Date: 20220720
  Serious: No
  Sender: FDA-Public Use
  Company Number: US-MYLANLABS-2022M1021524

PATIENT

DRUGS (1)
  1. SEMGLEE (INSULIN GLARGINE-YFGN) [Suspect]
     Active Substance: INSULIN GLARGINE-YFGN
     Indication: Product used for unknown indication
     Dosage: 40 MILLILITER, QD 3 ML IN 1 SYRINGE ? 40 ML 1X PER DAY (100 UNITS/ML)

REACTIONS (3)
  - Device defective [Unknown]
  - Underdose [Unknown]
  - Product quality issue [Unknown]
